FAERS Safety Report 6402543-8 (Version None)
Quarter: 2009Q4

REPORT INFORMATION
  Report Type: 
  Country: None (occurrence: None)
  Receive Date: 20091009
  Receipt Date: 20090930
  Transmission Date: 20100525
  Serious: Yes (Other)
  Sender: FDA-Public Use
  Company Number: ADR34642009

PATIENT
  Age: 32 Year
  Sex: Male

DRUGS (4)
  1. CIPROFLOXACIN [Suspect]
     Indication: URINARY TRACT INFECTION
     Dosage: 1 G ORAL
     Route: 048
     Dates: start: 20060515, end: 20060525
  2. ACETAMINOPHEN W/ CODEINE [Concomitant]
  3. TRAMADOL HCL [Concomitant]
  4. TRIMETHOPRIM [Concomitant]

REACTIONS (7)
  - DEPRESSION [None]
  - DYSGEUSIA [None]
  - INSOMNIA [None]
  - PARAESTHESIA [None]
  - PARANOIA [None]
  - PERSONALITY DISORDER [None]
  - TINNITUS [None]
